FAERS Safety Report 6004478-1 (Version None)
Quarter: 2008Q4

REPORT INFORMATION
  Report Type: 
  Country: None (occurrence: None)
  Receive Date: 20081216
  Receipt Date: 20081208
  Transmission Date: 20090506
  Serious: Yes (Other)
  Sender: FDA-Public Use
  Company Number: DE-ABBOTT-08P-062-0488667-00

PATIENT
  Sex: Female

DRUGS (3)
  1. HUMIRA [Suspect]
     Indication: JUVENILE ARTHRITIS
     Route: 058
     Dates: start: 20050101
  2. METHOTREXATE [Concomitant]
     Indication: JUVENILE ARTHRITIS
  3. CORTICOSTEROIDS [Concomitant]
     Indication: JUVENILE ARTHRITIS
     Dosage: 15 MG DAILY

REACTIONS (2)
  - JUVENILE ARTHRITIS [None]
  - UVEITIS [None]
